FAERS Safety Report 25723123 (Version 1)
Quarter: 2025Q3

REPORT INFORMATION
  Report Type: Spontaneous
  Country: US (occurrence: None)
  Receive Date: 20250823
  Receipt Date: 20250823
  Transmission Date: 20251020
  Serious: Yes (Life-Threatening, Other)
  Sender: FDA-CTU
  Company Number: None

PATIENT
  Age: 69 Year
  Sex: Female
  Weight: 83.91 kg

DRUGS (1)
  1. BACLOFEN [Suspect]
     Active Substance: BACLOFEN

REACTIONS (3)
  - Depressed level of consciousness [None]
  - Disorientation [None]
  - Seizure [None]

NARRATIVE: CASE EVENT DATE: 20250801
